FAERS Safety Report 10199271 (Version 1)
Quarter: 2014Q2

REPORT INFORMATION
  Report Type: Spontaneous
  Country: US (occurrence: US)
  Receive Date: 20140527
  Receipt Date: 20140527
  Transmission Date: 20141212
  Serious: No
  Sender: FDA-Public Use
  Company Number: US-NOVEN-13US008465

PATIENT
  Age: 16 Year
  Sex: Male

DRUGS (2)
  1. DAYTRANA [Suspect]
     Indication: PRODUCT USED FOR UNKNOWN INDICATION
     Dosage: 30 MG, UNK
     Route: 062
  2. DAYTRANA [Suspect]
     Dosage: 30 MG, UNK
     Route: 062

REACTIONS (5)
  - Increased appetite [Not Recovered/Not Resolved]
  - Wrong technique in drug usage process [Not Recovered/Not Resolved]
  - Incorrect drug administration duration [Not Recovered/Not Resolved]
  - Incorrect drug administration duration [Recovered/Resolved]
  - Product quality issue [Not Recovered/Not Resolved]
